FAERS Safety Report 17101996 (Version 4)
Quarter: 2022Q1

REPORT INFORMATION
  Report Type: Spontaneous
  Country: US (occurrence: US)
  Receive Date: 20191202
  Receipt Date: 20220212
  Transmission Date: 20220423
  Serious: Yes (Disabling, Other)
  Sender: FDA-Public Use
  Company Number: US-009507513-1804USA006690

PATIENT
  Sex: Female
  Weight: 71.202 kg

DRUGS (25)
  1. ZOSTAVAX [Suspect]
     Active Substance: VARICELLA-ZOSTER VIRUS STRAIN OKA/MERCK LIVE ANTIGEN
     Indication: Routine health maintenance
     Route: 065
     Dates: start: 20160404, end: 20160406
  2. ZOSTAVAX [Suspect]
     Active Substance: VARICELLA-ZOSTER VIRUS STRAIN OKA/MERCK LIVE ANTIGEN
     Indication: Prophylaxis
  3. STERILE DILUENT (WATER) [Suspect]
     Active Substance: WATER
     Indication: Prophylaxis
     Dosage: UNK
     Dates: start: 20160404, end: 20160404
  4. ZYRTEC [Concomitant]
     Active Substance: CETIRIZINE HYDROCHLORIDE
     Dosage: 1 TABLET EVERY DAY
     Route: 048
     Dates: start: 20141209
  5. ASPIRIN [Concomitant]
     Active Substance: ASPIRIN
     Dosage: 1 TABLET, EVERY DAY
     Route: 048
     Dates: start: 20141209
  6. VITAMINS NOS [Concomitant]
     Active Substance: VITAMINS
     Dosage: 1 TALET, EVERY DAY WITH FOOD
     Route: 048
     Dates: start: 20141209
  7. CALCIUM\CHOLECALCIFEROL [Concomitant]
     Active Substance: CALCIUM\CHOLECALCIFEROL
     Dosage: STRENGTH: 600 MG CALCIUM, 200 UNIT D3; 1 CAPSULE, DAILY
     Route: 048
     Dates: start: 20141209
  8. PROBIOTICS NOS [Concomitant]
     Active Substance: PROBIOTICS NOS
     Dosage: STRENGTH: 1.5 BILLION CELL; TAKE DAILY
     Route: 048
     Dates: start: 20141209
  9. ESTRADIOL [Concomitant]
     Active Substance: ESTRADIOL
     Indication: Hormone replacement therapy
     Dosage: 1 TABLET DAILY ON DAYS 1-21
     Route: 048
     Dates: start: 2007
  10. ESTRADIOL [Concomitant]
     Active Substance: ESTRADIOL
     Dosage: UNK
     Route: 048
     Dates: start: 20150608
  11. PROPRANOLOL HYDROCHLORIDE [Concomitant]
     Active Substance: PROPRANOLOL HYDROCHLORIDE
     Indication: Hypertension
     Dosage: 1 CAPSULE, DAILY
     Route: 048
     Dates: start: 2001
  12. PROPRANOLOL HYDROCHLORIDE [Concomitant]
     Active Substance: PROPRANOLOL HYDROCHLORIDE
     Dosage: UNK
     Route: 048
     Dates: start: 20160229
  13. ENALAPRIL MALEATE [Concomitant]
     Active Substance: ENALAPRIL MALEATE
     Indication: Hypertension
     Dosage: 1 TABLET, 2 TIMES EVERY EVENING
     Route: 048
     Dates: start: 20160301
  14. ENALAPRIL MALEATE [Concomitant]
     Active Substance: ENALAPRIL MALEATE
     Dosage: 10 MILLIGRAM, DAILY
     Dates: start: 201405, end: 201812
  15. ESCITALOPRAM [Concomitant]
     Active Substance: ESCITALOPRAM OXALATE
     Indication: Anxiety
     Dosage: 1.5 TABLET EVERY DAY
     Route: 048
     Dates: start: 20160301
  16. ESCITALOPRAM [Concomitant]
     Active Substance: ESCITALOPRAM OXALATE
     Dosage: UNK
     Route: 048
     Dates: start: 2000
  17. ESCITALOPRAM [Concomitant]
     Active Substance: ESCITALOPRAM OXALATE
     Dosage: 20 MILLIGRAM
     Route: 048
     Dates: start: 201412, end: 201811
  18. XANAX [Concomitant]
     Active Substance: ALPRAZOLAM
     Dosage: 1 TABLET, 2 TIMES EVERY DAY AS NEEDED
     Route: 048
     Dates: start: 20160301
  19. LOVASTATIN [Concomitant]
     Active Substance: LOVASTATIN
     Indication: Hyperlipidaemia
     Dosage: 1 TABLET, EVERY DAY WITH THE EVENING MEAL
     Route: 048
     Dates: start: 20160329
  20. LOVASTATIN [Concomitant]
     Active Substance: LOVASTATIN
     Dosage: UNK
     Route: 048
     Dates: start: 2008, end: 2018
  21. LOVASTATIN [Concomitant]
     Active Substance: LOVASTATIN
     Dosage: 20 MILLIGRAM
     Dates: start: 201406, end: 201811
  22. LEXAPRO [Concomitant]
     Active Substance: ESCITALOPRAM OXALATE
     Indication: Anxiety
     Dosage: 20 MG TAB, DAILY
     Route: 048
     Dates: start: 2000
  23. ALPRAZOLAM [Concomitant]
     Active Substance: ALPRAZOLAM
     Indication: Insomnia
     Dosage: 1 MG TAB NIGHTLY
     Route: 048
     Dates: start: 2007
  24. METFORMIN [Concomitant]
     Active Substance: METFORMIN HYDROCHLORIDE
     Indication: Blood glucose increased
     Dosage: 1000 MILLIGRAM
     Dates: start: 201406, end: 201811
  25. PROPRANOLOL HYDROCHLORIDE [Concomitant]
     Active Substance: PROPRANOLOL HYDROCHLORIDE
     Indication: Hypertension
     Dosage: 160 MILLIGRAM
     Dates: start: 201406, end: 201811

REACTIONS (34)
  - Bradycardia [Unknown]
  - Atrial fibrillation [Unknown]
  - Blindness [Unknown]
  - Cerebral atrophy [Unknown]
  - Cerebral small vessel ischaemic disease [Unknown]
  - Deafness neurosensory [Not Recovered/Not Resolved]
  - Device related infection [Unknown]
  - Endocarditis [Unknown]
  - Herpes zoster oticus [Not Recovered/Not Resolved]
  - Bell^s palsy [Not Recovered/Not Resolved]
  - Abdominal pain upper [Unknown]
  - Corneal abrasion [Unknown]
  - Amnesia [Unknown]
  - Anxiety [Unknown]
  - Bursitis [Unknown]
  - Coordination abnormal [Unknown]
  - Fall [Unknown]
  - Fall [Unknown]
  - Fatigue [Unknown]
  - Head injury [Unknown]
  - Influenza [Unknown]
  - Joint injury [Unknown]
  - Muscle spasms [Unknown]
  - Musculoskeletal pain [Unknown]
  - Osteoarthritis [Unknown]
  - Post herpetic neuralgia [Unknown]
  - Rhinitis allergic [Recovered/Resolved]
  - Vertigo positional [Unknown]
  - Motion sickness [Unknown]
  - Joint swelling [Unknown]
  - Contusion [Unknown]
  - Infection [Unknown]
  - Herpes zoster [Unknown]
  - Arthralgia [Unknown]

NARRATIVE: CASE EVENT DATE: 20160401
